FAERS Safety Report 8878944 (Version 1)
Quarter: 2012Q4

REPORT INFORMATION
  Report Type: 
  Country: BR (occurrence: BR)
  Receive Date: 20121026
  Receipt Date: 20121026
  Transmission Date: 20130627
  Serious: Yes (Death, Hospitalization, Other)
  Sender: FDA-Public Use
  Company Number: BR-009507513-2012SP015033

PATIENT
  Age: 70 Year
  Sex: Female
  Weight: 68 kg

DRUGS (15)
  1. PEGINTRON [Suspect]
     Indication: HEPATITIS C
     Dosage: UNK UNK, Unknown
     Route: 058
     Dates: start: 20120123
  2. PEGINTRON [Suspect]
     Dosage: 30 Microgram, qd
     Route: 058
  3. VICTRELIS [Suspect]
     Indication: HEPATITIS C
     Dosage: 12 DF, qd
     Dates: start: 20120305
  4. RIBAVIRIN [Suspect]
     Indication: HEPATITIS C
     Dosage: 2 DF, Unknown
     Dates: start: 20120123
  5. EPOETIN ALFA [Concomitant]
     Indication: ANAEMIA
     Dosage: 4 TIMES PER WEEK, INJECTABLE
     Route: 051
  6. NORIPURUM [Concomitant]
     Indication: ANAEMIA
     Dosage: HYDROXIDE SACCHARATE IRON III
     Route: 051
     Dates: start: 201201
  7. VITAMIN B COMPLEX [Concomitant]
     Indication: ANAEMIA
     Dosage: UNK UNK, qd
     Route: 048
     Dates: start: 2011
  8. INSULIN [Concomitant]
     Indication: DIABETES MELLITUS
     Dosage: UNK UNK, QD
     Route: 065
  9. GABAPENTIN [Concomitant]
     Indication: NEUROPATHY PERIPHERAL
     Dosage: 300 mg, bid
     Route: 048
     Dates: start: 201109
  10. LYRICA [Concomitant]
     Indication: NEUROPATHY PERIPHERAL
     Dosage: 75 mg, qd
     Route: 048
     Dates: start: 201202
  11. LACTULOSE [Concomitant]
     Indication: GASTROINTESTINAL DISORDER
     Dosage: UNSPECIFIED BOWEL DISORDER
     Route: 065
  12. LACTULOSE [Concomitant]
     Dosage: 667 mg, tid
     Route: 048
  13. DULCOLAX [Concomitant]
     Indication: GASTROINTESTINAL DISORDER
     Dosage: UNK UNK, Unknown
     Route: 048
  14. LASIX (FUROSEMIDE) [Concomitant]
     Indication: DIURETIC THERAPY
     Dosage: 40 mg, qd
     Route: 065
  15. OMEPRAZOLE [Concomitant]
     Indication: GASTRIC DISORDER
     Dosage: UNK, qd
     Route: 048
     Dates: start: 2009

REACTIONS (4)
  - Death [Fatal]
  - Cerebrovascular accident [Unknown]
  - Anaemia [Not Recovered/Not Resolved]
  - Asthenia [Not Recovered/Not Resolved]
